FAERS Safety Report 21585490 (Version 7)
Quarter: 2023Q4

REPORT INFORMATION
  Report Type: Report from Study
  Country: DE (occurrence: DE)
  Receive Date: 20221111
  Receipt Date: 20231214
  Transmission Date: 20240109
  Serious: Yes (Life-Threatening, Other)
  Sender: FDA-Public Use
  Company Number: DE-BRISTOL-MYERS SQUIBB COMPANY-2022-133744

PATIENT
  Age: 40 Year
  Sex: Female
  Weight: 50 kg

DRUGS (5)
  1. OZANIMOD [Suspect]
     Active Substance: OZANIMOD
     Indication: Multiple sclerosis
     Route: 048
     Dates: start: 20210818, end: 20221118
  2. DEXAMETHASONE [Concomitant]
     Active Substance: DEXAMETHASONE
     Indication: Neoplasm
     Dates: start: 20221118, end: 20221118
  3. IBUPROFEN [Concomitant]
     Active Substance: IBUPROFEN
     Indication: Back pain
     Dates: start: 202209
  4. RIBOCICLIB [Concomitant]
     Active Substance: RIBOCICLIB
     Indication: Breast cancer metastatic
  5. LETROZOLE [Concomitant]
     Active Substance: LETROZOLE
     Indication: Breast cancer metastatic

REACTIONS (1)
  - Breast cancer metastatic [Recovering/Resolving]

NARRATIVE: CASE EVENT DATE: 20220712
